FAERS Safety Report 13281811 (Version 5)
Quarter: 2017Q4

REPORT INFORMATION
  Report Type: Spontaneous
  Country: US (occurrence: US)
  Receive Date: 20170301
  Receipt Date: 20171010
  Transmission Date: 20180320
  Serious: No
  Sender: FDA-Public Use
  Company Number: US-PFIZER INC-2017085895

PATIENT
  Age: 52 Year
  Sex: Female

DRUGS (1)
  1. XELJANZ XR [Suspect]
     Active Substance: TOFACITINIB CITRATE
     Dosage: 11 MG, UNK
     Dates: start: 201607

REACTIONS (6)
  - Blood potassium increased [Unknown]
  - Renal disorder [Unknown]
  - Drug ineffective [Unknown]
  - Varicella [Unknown]
  - Rash [Unknown]
  - Urticaria [Unknown]
